FAERS Safety Report 11707106 (Version 1)
Quarter: 2015Q4

REPORT INFORMATION
  Report Type: Spontaneous
  Country: US (occurrence: US)
  Receive Date: 20151104
  Receipt Date: 20151104
  Transmission Date: 20160304
  Serious: No
  Sender: FDA-Public Use
  Company Number: US-ELI_LILLY_AND_COMPANY-US201012000638

PATIENT
  Sex: Female

DRUGS (2)
  1. FORTEO [Suspect]
     Active Substance: TERIPARATIDE
     Dosage: 20 UG, DAILY (1/D)
     Route: 065
  2. FORTEO [Suspect]
     Active Substance: TERIPARATIDE
     Indication: OSTEOPOROSIS
     Dosage: 20 UG, DAILY (1/D)
     Route: 065
     Dates: start: 20101126

REACTIONS (10)
  - Eye pruritus [Unknown]
  - Nasal pruritus [Unknown]
  - Rhinorrhoea [Unknown]
  - Nausea [Unknown]
  - Anxiety [Unknown]
  - Lacrimation increased [Unknown]
  - Sneezing [Unknown]
  - Injection site bruising [Unknown]
  - Injection site erythema [Unknown]
  - Nasopharyngitis [Unknown]
